FAERS Safety Report 16356174 (Version 2)
Quarter: 2019Q2

REPORT INFORMATION
  Report Type: Report from Study
  Country: None (occurrence: RO)
  Receive Date: 20190527
  Receipt Date: 20190607
  Transmission Date: 20190711
  Serious: Yes (Hospitalization, Other)
  Sender: FDA-Public Use
  Company Number: RO-ABBVIE-19S-135-2796540-00

PATIENT
  Age: 66 Year
  Sex: Male

DRUGS (6)
  1. OLANZAPINE. [Concomitant]
     Active Substance: OLANZAPINE
     Indication: DEPRESSION
     Route: 048
  2. DUODOPA [Suspect]
     Active Substance: CARBIDOPA\LEVODOPA
     Indication: PARKINSON^S DISEASE
     Dosage: DM=12.00;DC=6.80;ED=8.00;NRED=3;DMN=0.00;DCN=0.00;EDN=0.00;NREDN=0
     Route: 050
     Dates: start: 20140519
  3. ANXIAR  (NON-ABBVIE) [Concomitant]
     Indication: DEPRESSION
     Route: 048
  4. PAROXETINE. [Concomitant]
     Active Substance: PAROXETINE
     Indication: DEPRESSION
     Route: 048
  5. RIVOTRIL [Concomitant]
     Active Substance: CLONAZEPAM
     Indication: DEPRESSION
     Route: 048
  6. ISICOM  (NON-ABBVIE) [Concomitant]
     Indication: PARKINSON^S DISEASE
     Route: 048

REACTIONS (7)
  - Posterior cortical atrophy [Not Recovered/Not Resolved]
  - Cerebrovascular accident [Recovered/Resolved]
  - Dementia [Not Recovered/Not Resolved]
  - Ischaemic stroke [Recovering/Resolving]
  - Cerebral ischaemia [Not Recovered/Not Resolved]
  - Pyramidal tract syndrome [Unknown]
  - Aphasia [Recovering/Resolving]

NARRATIVE: CASE EVENT DATE: 20190522
